FAERS Safety Report 5480707-8 (Version None)
Quarter: 2007Q4

REPORT INFORMATION
  Report Type: 
  Country: None (occurrence: None)
  Receive Date: 20071009
  Receipt Date: 20070925
  Transmission Date: 20080405
  Serious: Yes (Hospitalization, Other)
  Sender: FDA-Public Use
  Company Number: US-ELI_LILLY_AND_COMPANY-US200709006021

PATIENT
  Sex: Male

DRUGS (7)
  1. CYMBALTA [Suspect]
     Indication: DEPRESSION
     Dosage: 30 MG, DAILY (1/D)
     Dates: start: 20070315, end: 20070322
  2. CELEBREX [Concomitant]
  3. MULTI-VITAMIN [Concomitant]
  4. ANTIHYPERTENSIVES [Concomitant]
  5. MAVIK [Concomitant]
  6. TUMS [Concomitant]
  7. PANGESTYME [Concomitant]

REACTIONS (10)
  - ACTIVITIES OF DAILY LIVING IMPAIRED [None]
  - ASTHENIA [None]
  - BALANCE DISORDER [None]
  - COGNITIVE DISORDER [None]
  - DEHYDRATION [None]
  - DISORIENTATION [None]
  - GAIT DISTURBANCE [None]
  - LOSS OF CONSCIOUSNESS [None]
  - MYALGIA [None]
  - SPEECH DISORDER [None]
